FAERS Safety Report 9797725 (Version 1)
Quarter: 2014Q1

REPORT INFORMATION
  Report Type: Spontaneous
  Country: US (occurrence: US)
  Receive Date: 20140106
  Receipt Date: 20140106
  Transmission Date: 20141002
  Serious: No
  Sender: FDA-Public Use
  Company Number: US-PFIZER INC-2014002349

PATIENT
  Age: 57 Year
  Sex: Female
  Weight: 86.17 kg

DRUGS (2)
  1. EFFEXOR XR [Suspect]
     Indication: ANXIETY
     Dosage: 75 MG, UNK
  2. EFFEXOR XR [Suspect]
     Indication: DYSPNOEA

REACTIONS (3)
  - Sleep disorder [Unknown]
  - Middle insomnia [Unknown]
  - Off label use [Unknown]
